FAERS Safety Report 9797079 (Version 1)
Quarter: 2014Q1

REPORT INFORMATION
  Report Type: Spontaneous
  Country: SE (occurrence: SE)
  Receive Date: 20140105
  Receipt Date: 20140105
  Transmission Date: 20141002
  Serious: Yes (Other)
  Sender: FDA-Public Use
  Company Number: SE-JNJFOC-20131217823

PATIENT
  Sex: Male

DRUGS (2)
  1. IMODIUM PLUS [Suspect]
     Route: 065
  2. IMODIUM PLUS [Suspect]
     Indication: PRODUCT USED FOR UNKNOWN INDICATION
     Route: 065

REACTIONS (1)
  - Drug dependence [Unknown]
